FAERS Safety Report 5400023-X (Version None)
Quarter: 2007Q3

REPORT INFORMATION
  Report Type: 
  Country: None (occurrence: None)
  Receive Date: 20070726
  Receipt Date: 20070726
  Transmission Date: 20080115
  Serious: Yes (Hospitalization)
  Sender: FDA-Public Use
  Company Number: None

PATIENT
  Age: 51 Year
  Sex: Female

DRUGS (22)
  1. AMITIZA [Suspect]
     Indication: CONSTIPATION
  2. NEURONTIN [Concomitant]
  3. PLAQUENIL [Concomitant]
  4. FOLIC ACID [Concomitant]
  5. PREDNISONE TAB [Concomitant]
  6. NORCO [Concomitant]
  7. PIRIOXICAM [Concomitant]
  8. KLOR-CON [Concomitant]
  9. SOMA [Concomitant]
  10. REGLAN [Concomitant]
  11. PSEUDOVENT [Concomitant]
  12. ALTACE [Concomitant]
  13. VITAMIN B-12 [Concomitant]
  14. RESTORIL [Concomitant]
  15. ACTONEL [Concomitant]
  16. PROTONIX [Concomitant]
  17. METOPROLOL SUCCINATE [Concomitant]
  18. COMPAZINE [Concomitant]
  19. FIORINAL [Concomitant]
  20. HYDROXYZINE [Concomitant]
  21. KADIAN [Concomitant]
  22. MIRALAX [Concomitant]

REACTIONS (3)
  - DIARRHOEA [None]
  - NAUSEA [None]
  - VOMITING [None]
